FAERS Safety Report 6000101-0 (Version None)
Quarter: 2008Q4

REPORT INFORMATION
  Report Type: 
  Country: None (occurrence: None)
  Receive Date: 20081215
  Receipt Date: 20081208
  Transmission Date: 20090506
  Serious: Yes (Hospitalization)
  Sender: FDA-Public Use
  Company Number: D0059165A

PATIENT
  Age: 76 Year
  Sex: Male
  Weight: 74 kg

DRUGS (14)
  1. DARAPRIM [Suspect]
     Indication: TOXOPLASMOSIS
     Dosage: 25MG TWICE PER DAY
     Route: 048
     Dates: start: 20080909, end: 20081015
  2. PROGRAF [Concomitant]
     Route: 048
  3. ASPIRIN [Concomitant]
     Dosage: 100MG PER DAY
     Route: 048
  4. ALLOPURINOL [Concomitant]
     Route: 048
  5. PRAVASTATIN SODIUM [Concomitant]
     Dosage: 10MG PER DAY
     Route: 048
  6. BAZOTON UNO [Concomitant]
     Route: 048
  7. FUROSEMID [Concomitant]
     Dosage: 40MG TWICE PER DAY
     Route: 048
  8. HERBAL URINARY MEDICATION [Concomitant]
     Route: 048
  9. HEPAR SL FORTE [Concomitant]
     Route: 048
  10. CANDIO-HERMAL [Concomitant]
     Dosage: 2ML PER DAY
     Route: 048
  11. CERTICAN [Concomitant]
     Route: 048
  12. SULFADIAZINE [Concomitant]
     Dosage: 500MG TWICE PER DAY
     Route: 048
  13. FOSINORM [Concomitant]
     Dosage: 5MG PER DAY
     Route: 048
  14. ROCALTROL [Concomitant]
     Dosage: .5UG PER DAY
     Route: 048

REACTIONS (3)
  - BLINDNESS [None]
  - OPTIC ISCHAEMIC NEUROPATHY [None]
  - PAPILLOEDEMA [None]
